FAERS Safety Report 5009664-5 (Version None)
Quarter: 2006Q2

REPORT INFORMATION
  Report Type: 
  Country: None (occurrence: None)
  Receive Date: 20060524
  Receipt Date: 20060517
  Transmission Date: 20061013
  Serious: Yes (Hospitalization)
  Sender: FDA-Public Use
  Company Number: FR-GLAXOSMITHKLINE-B0424713A

PATIENT
  Age: 62 Year
  Sex: Male
  Weight: 73 kg

DRUGS (6)
  1. AUGMENTIN '125' [Suspect]
     Dosage: 3G PER DAY
     Route: 048
     Dates: end: 20060201
  2. OFLOCET [Concomitant]
     Dosage: 400MG PER DAY
     Route: 048
     Dates: end: 20060201
  3. FONZYLANE [Concomitant]
     Dosage: 400ML PER DAY
     Route: 042
  4. LOXEN [Concomitant]
     Dosage: 50MG PER DAY
     Route: 048
  5. ACETAMINOPHEN [Concomitant]
     Dosage: 4G PER DAY
     Route: 042
  6. CONTRAMAL [Concomitant]
     Dosage: 200MG PER DAY
     Route: 048

REACTIONS (6)
  - DRUG HYPERSENSITIVITY [None]
  - ERYTHEMA [None]
  - OEDEMA [None]
  - RASH PUSTULAR [None]
  - SKIN EXFOLIATION [None]
  - TOXIC SKIN ERUPTION [None]
